FAERS Safety Report 24590725 (Version 2)
Quarter: 2024Q4

REPORT INFORMATION
  Report Type: Report from Study
  Country: DE (occurrence: DE)
  Receive Date: 20241107
  Receipt Date: 20241113
  Transmission Date: 20250114
  Serious: Yes (Life-Threatening, Hospitalization, Other)
  Sender: ELI LILLY AND COMPANY
  Company Number: DE-BRISTOL-MYERS SQUIBB COMPANY-2024-127221

PATIENT
  Age: 71 Year
  Sex: Male
  Weight: 102 kg

DRUGS (38)
  1. ALIMTA [Suspect]
     Active Substance: PEMETREXED DISODIUM
     Indication: Non-small cell lung cancer
     Dosage: 1125 MG, UNKNOWN
     Route: 065
     Dates: start: 20220816
  2. ALIMTA [Suspect]
     Active Substance: PEMETREXED DISODIUM
     Dosage: 1125 MG, UNKNOWN
     Route: 065
     Dates: start: 20220907
  3. OPDIVO [Suspect]
     Active Substance: NIVOLUMAB
     Indication: Non-small cell lung cancer
     Dosage: 360 MG, EVERY THREE WEEKS
     Route: 042
     Dates: start: 20220816
  4. YERVOY [Suspect]
     Active Substance: IPILIMUMAB
     Indication: Non-small cell lung cancer
     Dosage: 108 MG, EVERY SIX WEEKS
     Route: 042
     Dates: start: 20220816
  5. CARBOPLATIN [Suspect]
     Active Substance: CARBOPLATIN
     Indication: Non-small cell lung cancer
     Dosage: 360 MG, EVERY THREE WEEKS
     Route: 042
     Dates: start: 20220816, end: 20220907
  6. BISOPROLOL [Concomitant]
     Active Substance: BISOPROLOL\BISOPROLOL FUMARATE
     Indication: Product used for unknown indication
     Dosage: UNK
     Dates: start: 20240815
  7. BISOPROLOL [Concomitant]
     Active Substance: BISOPROLOL\BISOPROLOL FUMARATE
     Dosage: UNK
     Dates: start: 20240816
  8. AMLODIPINE [Concomitant]
     Active Substance: AMLODIPINE BESYLATE
     Indication: Product used for unknown indication
  9. ASPIRIN [Concomitant]
     Active Substance: ASPIRIN
     Indication: Product used for unknown indication
  10. ALLOPURINOL [Concomitant]
     Active Substance: ALLOPURINOL
     Indication: Product used for unknown indication
  11. SIMVASTATIN [Concomitant]
     Active Substance: SIMVASTATIN
     Indication: Product used for unknown indication
  12. EUTHYROX [Concomitant]
     Active Substance: LEVOTHYROXINE SODIUM
     Indication: Product used for unknown indication
  13. VENLAFAXINE HYDROCHLORIDE [Concomitant]
     Active Substance: VENLAFAXINE HYDROCHLORIDE
     Indication: Product used for unknown indication
     Dosage: UNK
     Dates: end: 20240815
  14. VENLAFAXINE HYDROCHLORIDE [Concomitant]
     Active Substance: VENLAFAXINE HYDROCHLORIDE
     Dates: start: 20240816
  15. PANTOPRAZOLE [Concomitant]
     Active Substance: PANTOPRAZOLE
     Indication: Prophylaxis
     Dosage: UNK
     Dates: start: 20220816, end: 20240815
  16. PANTOPRAZOLE [Concomitant]
     Active Substance: PANTOPRAZOLE
     Dosage: UNK
     Dates: start: 20240816
  17. FENOTEROL HYDROBROMIDE\IPRATROPIUM BROMIDE [Concomitant]
     Active Substance: FENOTEROL HYDROBROMIDE\IPRATROPIUM BROMIDE
     Indication: Product used for unknown indication
     Dosage: IF NEEDED
  18. SYMBICORT [Concomitant]
     Active Substance: BUDESONIDE\FORMOTEROL FUMARATE DIHYDRATE
     Indication: Product used for unknown indication
  19. MAGNESIUM [Concomitant]
     Active Substance: MAGNESIUM
     Indication: Product used for unknown indication
  20. CANDESARTAN [Concomitant]
     Active Substance: CANDESARTAN
     Indication: Product used for unknown indication
     Dosage: UNK
     Dates: start: 20230501, end: 20240815
  21. CANDESARTAN [Concomitant]
     Active Substance: CANDESARTAN
     Dosage: UNK
     Dates: start: 20240816
  22. XGEVA [Concomitant]
     Active Substance: DENOSUMAB
     Indication: Product used for unknown indication
     Dates: start: 20230605
  23. MOXONIDINE [Concomitant]
     Active Substance: MOXONIDINE
     Indication: Product used for unknown indication
     Dosage: UNK
     Dates: start: 20230816, end: 20240815
  24. MIRTAZAPINE [Concomitant]
     Active Substance: MIRTAZAPINE
     Indication: Product used for unknown indication
     Dates: start: 20230816
  25. TORSEMIDE [Concomitant]
     Active Substance: TORSEMIDE
     Indication: Product used for unknown indication
     Dates: start: 20230816
  26. HYDROMORPHONE [Concomitant]
     Active Substance: HYDROMORPHONE
     Indication: Product used for unknown indication
     Dosage: HYDROMORPHON (2 TIMES A DAY IF NEEDED FROM 16.8.24 OTHERWISE ONLY ONCE A DAY)
     Dates: start: 20230816
  27. CALCITRIOL GRY [Concomitant]
     Indication: Product used for unknown indication
     Dosage: UNK
     Dates: start: 20230816, end: 20240815
  28. CALCITRIOL GRY [Concomitant]
     Dosage: UNK
     Dates: start: 20240816
  29. CHOLECALCIFEROL [Concomitant]
     Active Substance: CHOLECALCIFEROL
     Indication: Prophylaxis
     Dates: start: 20230816
  30. FOLIC ACID [Concomitant]
     Active Substance: FOLIC ACID
     Indication: Product used for unknown indication
     Dosage: EVERY TWO DAYS
     Dates: start: 20230816
  31. CALINOR [Concomitant]
     Indication: Prophylaxis
     Dosage: EVERY TWO DAYS
     Dates: start: 20230816
  32. TAMSULOSIN [Concomitant]
     Active Substance: TAMSULOSIN
     Indication: Product used for unknown indication
     Dosage: IF NEEDED
     Dates: start: 20231201
  33. NOVALGIN [CAFFEINE;PARACETAMOL;PROPYPHENAZONE [Concomitant]
     Indication: Product used for unknown indication
     Dosage: IF NEEDED
     Dates: start: 20231201
  34. NOVALGIN [CAFFEINE;PARACETAMOL;PROPYPHENAZONE [Concomitant]
     Dosage: IF NEEDED
     Dates: start: 20231201
  35. NOVALGIN [CAFFEINE;PARACETAMOL;PROPYPHENAZONE [Concomitant]
     Dosage: IF NEEDED
     Dates: start: 20231201
  36. VITAMIN B COMPLEX [Concomitant]
     Active Substance: CYANOCOBALAMIN\DEXPANTHENOL\NIACINAMIDE\PYRIDOXINE HYDROCHLORIDE\RIBOFLAVIN 5^-PHOSPHATE SODIUM\THIA
     Indication: Prophylaxis
     Dosage: IF NEEDED
     Dates: start: 20231201
  37. ZOPICLONE [Concomitant]
     Active Substance: ZOPICLONE
     Indication: Prophylaxis
     Dosage: IF NEEDED
     Dates: start: 20240719, end: 20240730
  38. HEPARIN SODIUM [Concomitant]
     Active Substance: HEPARIN SODIUM
     Indication: Prophylaxis
     Dosage: 7500 INTERNATIONAL UNIT
     Dates: start: 20240719, end: 20240730

REACTIONS (10)
  - Craniocerebral injury [Recovered/Resolved]
  - Fall [Unknown]
  - Craniofacial fracture [Recovered/Resolved]
  - Subarachnoid haemorrhage [Unknown]
  - Open globe injury [Unknown]
  - Blindness [Not Recovered/Not Resolved]
  - Anaphylactoid reaction [Recovered/Resolved]
  - Retrograde amnesia [Unknown]
  - Eye injury [Not Recovered/Not Resolved]
  - Conjunctivitis [Recovered/Resolved]

NARRATIVE: CASE EVENT DATE: 20240719
